FAERS Safety Report 19164344 (Version 23)
Quarter: 2022Q2

REPORT INFORMATION
  Report Type: Spontaneous
  Country: GB (occurrence: GB)
  Receive Date: 20210421
  Receipt Date: 20220419
  Transmission Date: 20220721
  Serious: Yes (Other)
  Sender: FDA-Public Use
  Company Number: None

PATIENT
  Sex: Male

DRUGS (3)
  1. RAMIPRIL [Suspect]
     Active Substance: RAMIPRIL
     Indication: Hypertension
     Dosage: 5 MG, UNK
     Route: 065
     Dates: start: 202101
  2. SOLIRIS [Suspect]
     Active Substance: ECULIZUMAB
     Indication: Atypical haemolytic uraemic syndrome
     Dosage: UNK
     Route: 042
     Dates: start: 201703
  3. PENICILLIN [Concomitant]
     Active Substance: PENICILLIN
     Dosage: 500 MG, BID
     Route: 065

REACTIONS (7)
  - Hypertension [Recovering/Resolving]
  - Product dose omission issue [Unknown]
  - Poor venous access [Unknown]
  - Renal impairment [Not Recovered/Not Resolved]
  - Cough [Recovering/Resolving]
  - Fatigue [Not Recovered/Not Resolved]
  - Blood pressure increased [Not Recovered/Not Resolved]
